FAERS Safety Report 10872632 (Version 1)
Quarter: 2015Q1

REPORT INFORMATION
  Report Type: Spontaneous
  Country: US (occurrence: US)
  Receive Date: 20150227
  Receipt Date: 20150227
  Transmission Date: 20150721
  Serious: No
  Sender: FDA-Public Use
  Company Number: US-ASTRAZENECA-2015SE18737

PATIENT
  Age: 33 Year
  Sex: Female

DRUGS (3)
  1. PEPCID [Concomitant]
     Active Substance: FAMOTIDINE
  2. NEXIUM 24HR [Suspect]
     Active Substance: ESOMEPRAZOLE MAGNESIUM
     Indication: DYSPEPSIA
     Dosage: 22.3 MG, 2 DF, DAILY
     Route: 048
     Dates: start: 201502
  3. NEXIUM 24HR [Suspect]
     Active Substance: ESOMEPRAZOLE MAGNESIUM
     Indication: DYSPEPSIA
     Route: 048
     Dates: start: 20150205, end: 201502

REACTIONS (6)
  - Nausea [Not Recovered/Not Resolved]
  - Condition aggravated [Unknown]
  - Intentional product misuse [Unknown]
  - Drug ineffective [Unknown]
  - Dyspepsia [Not Recovered/Not Resolved]
  - Abdominal pain upper [Not Recovered/Not Resolved]

NARRATIVE: CASE EVENT DATE: 201502
